FAERS Safety Report 6673466-4 (Version None)
Quarter: 2010Q2

REPORT INFORMATION
  Report Type: 
  Country: None (occurrence: None)
  Receive Date: 20100408
  Receipt Date: 20100331
  Transmission Date: 20101027
  Serious: Yes (Other)
  Sender: FDA-Public Use
  Company Number: FR-PFIZER INC-2010040893

PATIENT
  Sex: Male

DRUGS (1)
  1. TRIFLUCAN [Suspect]
     Dosage: LOW DOSAGE
     Dates: start: 20100212, end: 20100218

REACTIONS (1)
  - EXTRASYSTOLES [None]
